FAERS Safety Report 18322163 (Version 3)
Quarter: 2020Q4

REPORT INFORMATION
  Report Type: Spontaneous
  Country: JP (occurrence: JP)
  Receive Date: 20200929
  Receipt Date: 20201026
  Transmission Date: 20210113
  Serious: Yes (Hospitalization, Disabling)
  Sender: FDA-Public Use
  Company Number: NVSJ2020JP008816

PATIENT
  Age: 83 Year
  Sex: Female

DRUGS (3)
  1. EYLEA [Suspect]
     Active Substance: AFLIBERCEPT
     Indication: AGE-RELATED MACULAR DEGENERATION
     Dosage: UNK UNK, Q2MO
     Route: 031
     Dates: start: 2014
  2. EYLEA [Suspect]
     Active Substance: AFLIBERCEPT
     Dosage: UNK, 22ND TIME
     Route: 031
     Dates: start: 20200603, end: 20200603
  3. BEOVU [Suspect]
     Active Substance: BROLUCIZUMAB-DBLL
     Indication: AGE-RELATED MACULAR DEGENERATION
     Dosage: 6 MG
     Route: 031
     Dates: start: 20200729, end: 20200729

REACTIONS (10)
  - Retinal vasculitis [Unknown]
  - Keratic precipitates [Unknown]
  - Cerebral infarction [Unknown]
  - Uveitis [Unknown]
  - Visual acuity reduced [Unknown]
  - Hemiplegia [Unknown]
  - Anterior chamber cell [Unknown]
  - Retinal artery occlusion [Unknown]
  - Vitreous opacities [Unknown]
  - Anterior chamber inflammation [Unknown]

NARRATIVE: CASE EVENT DATE: 20200827
